FAERS Safety Report 4913123-5 (Version None)
Quarter: 2006Q1

REPORT INFORMATION
  Report Type: 
  Country: None (occurrence: None)
  Receive Date: 20060210
  Receipt Date: 20060130
  Transmission Date: 20060701
  Serious: Yes (Hospitalization)
  Sender: FDA-Public Use
  Company Number: GXKR2006BE00712

PATIENT
  Age: 92 Year
  Sex: Female

DRUGS (3)
  1. GABAPENTIN [Suspect]
     Indication: DIABETES MELLITUS
     Dosage: 300 MG, QD, ORAL
     Route: 048
     Dates: start: 20051224, end: 20060114
  2. PULMICORT [Concomitant]
  3. DUOVENT (FENOTEROL HYDROBROMIDE, IPRATROPIUM BROMIDE) [Concomitant]

REACTIONS (3)
  - ACUTE TONSILLITIS [None]
  - ASTHENIA [None]
  - BRONCHITIS [None]
